FAERS Safety Report 23109835 (Version 1)
Quarter: 2023Q4

REPORT INFORMATION
  Report Type: Spontaneous
  Country: US (occurrence: None)
  Receive Date: 20231026
  Receipt Date: 20231026
  Transmission Date: 20240110
  Serious: Yes (Death, Other)
  Sender: FDA-Public Use
  Company Number: US-ENDO-CASE-0034628

PATIENT
  Sex: Female

DRUGS (18)
  1. ENDOCET [Suspect]
     Active Substance: ACETAMINOPHEN\OXYCODONE HYDROCHLORIDE
  2. TRAMADOL HYDROCHLORIDE [Suspect]
     Active Substance: TRAMADOL HYDROCHLORIDE
  3. ACETAMINOPHEN\HYDROCODONE BITARTRATE [Suspect]
     Active Substance: ACETAMINOPHEN\HYDROCODONE BITARTRATE
  4. NUBAIN [Suspect]
     Active Substance: NALBUPHINE HYDROCHLORIDE
  5. OPANA ER [Suspect]
     Active Substance: OXYMORPHONE HYDROCHLORIDE
  6. PERCOCET [Suspect]
     Active Substance: ACETAMINOPHEN\OXYCODONE HYDROCHLORIDE
  7. SOMA [Suspect]
     Active Substance: CARISOPRODOL
  8. CHERATUSSIN AC [Suspect]
     Active Substance: CODEINE PHOSPHATE\GUAIFENESIN
  9. MORPHINE SULFATE [Suspect]
     Active Substance: MORPHINE SULFATE
  10. MS CONTIN [Suspect]
     Active Substance: MORPHINE SULFATE
  11. KLONOPIN [Suspect]
     Active Substance: CLONAZEPAM
  12. MEPERGAN [Suspect]
     Active Substance: MEPERIDINE HYDROCHLORIDE\PROMETHAZINE HYDROCHLORIDE
  13. PROPOXYPHENE HYDROCHLORIDE [Suspect]
     Active Substance: PROPOXYPHENE HYDROCHLORIDE
  14. HYDROCODONE BITARTRATE\IBUPROFEN [Suspect]
     Active Substance: HYDROCODONE BITARTRATE\IBUPROFEN
  15. FENTANYL CITRATE [Suspect]
     Active Substance: FENTANYL CITRATE
  16. ACETAMINOPHEN\HYDROCODONE BITARTRATE [Suspect]
     Active Substance: ACETAMINOPHEN\HYDROCODONE BITARTRATE
  17. DEPODUR [Suspect]
     Active Substance: MORPHINE SULFATE
  18. VICOPROFEN [Suspect]
     Active Substance: HYDROCODONE BITARTRATE\IBUPROFEN

REACTIONS (4)
  - Death [Fatal]
  - Dependence [Unknown]
  - Maternal exposure during breast feeding [Unknown]
  - Overdose [Unknown]
